FAERS Safety Report 14247978 (Version 1)
Quarter: 2017Q4

REPORT INFORMATION
  Report Type: Spontaneous
  Country: US (occurrence: US)
  Receive Date: 20171204
  Receipt Date: 20171204
  Transmission Date: 20180321
  Serious: Yes (Other)
  Sender: FDA-Public Use
  Company Number: US-ABBVIE-17P-163-1923427-00

PATIENT
  Age: 83 Year
  Sex: Female

DRUGS (11)
  1. CEFDINIR. [Suspect]
     Active Substance: CEFDINIR
     Route: 048
     Dates: start: 20170306
  2. CEFDINIR. [Suspect]
     Active Substance: CEFDINIR
     Indication: URINARY TRACT INFECTION
     Route: 048
  3. JAKAFI [Suspect]
     Active Substance: RUXOLITINIB
     Indication: POLYCYTHAEMIA VERA
     Route: 048
     Dates: start: 20161017
  4. JAKAFI [Suspect]
     Active Substance: RUXOLITINIB
     Route: 048
  5. KEFLEX [Concomitant]
     Active Substance: CEPHALEXIN
     Indication: PRODUCT USED FOR UNKNOWN INDICATION
  6. TAMSULOSIN [Concomitant]
     Active Substance: TAMSULOSIN
     Indication: PRODUCT USED FOR UNKNOWN INDICATION
  7. JAKAFI [Suspect]
     Active Substance: RUXOLITINIB
     Route: 048
  8. LISINOPRIL AND HYDROCHLOROTHIAZIDE [Concomitant]
     Active Substance: HYDROCHLOROTHIAZIDE\LISINOPRIL
     Indication: PRODUCT USED FOR UNKNOWN INDICATION
  9. CENTRUM SILVER [Concomitant]
     Active Substance: MINERALS\VITAMINS
     Indication: PRODUCT USED FOR UNKNOWN INDICATION
  10. VITAMIN C [Concomitant]
     Active Substance: ASCORBIC ACID
     Indication: PRODUCT USED FOR UNKNOWN INDICATION
  11. ALLOPURINOL. [Concomitant]
     Active Substance: ALLOPURINOL
     Indication: PRODUCT USED FOR UNKNOWN INDICATION

REACTIONS (15)
  - Gastroenteritis viral [Unknown]
  - Defaecation urgency [Unknown]
  - Haemoglobin abnormal [Recovering/Resolving]
  - Pain in extremity [Recovering/Resolving]
  - Fatigue [Unknown]
  - Malaise [Recovering/Resolving]
  - Abdominal pain upper [Recovering/Resolving]
  - Cystitis [Recovering/Resolving]
  - Vomiting [Unknown]
  - Urinary tract infection [Unknown]
  - Muscle spasms [Recovered/Resolved]
  - Nausea [Unknown]
  - Diarrhoea [Unknown]
  - Platelet count increased [Unknown]
  - Urinary tract infection [Recovering/Resolving]

NARRATIVE: CASE EVENT DATE: 201610
